FAERS Safety Report 5991275-6 (Version None)
Quarter: 2008Q4

REPORT INFORMATION
  Report Type: 
  Country: None (occurrence: None)
  Receive Date: 20081211
  Receipt Date: 20080425
  Transmission Date: 20090506
  Serious: No
  Sender: FDA-Public Use
  Company Number: US-AMGEN-KDL275223

PATIENT
  Sex: Female

DRUGS (8)
  1. ENBREL [Suspect]
     Indication: PSORIATIC ARTHROPATHY
     Route: 058
     Dates: start: 20070731, end: 20080121
  2. METHOTREXATE [Suspect]
     Route: 058
     Dates: start: 20061101
  3. CELEBREX [Concomitant]
  4. CYMBALTA [Concomitant]
  5. SYNTHROID [Concomitant]
  6. RESTASIS [Concomitant]
  7. CLARITIN [Concomitant]
  8. FOLIC ACID [Concomitant]

REACTIONS (5)
  - DRUG INEFFECTIVE [None]
  - HEPATIC ENZYME ABNORMAL [None]
  - HEPATIC ENZYME INCREASED [None]
  - INJECTION SITE HAEMATOMA [None]
  - PSORIATIC ARTHROPATHY [None]
